FAERS Safety Report 13541324 (Version 2)
Quarter: 2017Q2

REPORT INFORMATION
  Report Type: Spontaneous
  Country: US (occurrence: US)
  Receive Date: 20170512
  Receipt Date: 20170515
  Transmission Date: 20170830
  Serious: Yes (Other)
  Sender: FDA-Public Use
  Company Number: US-ABBVIE-17K-163-1967905-00

PATIENT
  Age: 67 Year
  Sex: Female
  Weight: 74.84 kg

DRUGS (17)
  1. LYRICA [Suspect]
     Active Substance: PREGABALIN
     Indication: MIGRAINE
     Route: 048
     Dates: start: 2007
  2. GABAPENTIN. [Suspect]
     Active Substance: GABAPENTIN
     Indication: NECK PAIN
  3. GABAPENTIN. [Suspect]
     Active Substance: GABAPENTIN
     Indication: FIBROMYALGIA
     Route: 048
     Dates: start: 20170314
  4. CEFDINIR. [Suspect]
     Active Substance: CEFDINIR
     Indication: PROPHYLAXIS
     Route: 048
  5. CEFDINIR. [Suspect]
     Active Substance: CEFDINIR
     Indication: MALAISE
  6. SYNTHROID [Concomitant]
     Active Substance: LEVOTHYROXINE SODIUM
     Indication: HYPOTHYROIDISM
  7. HUMIRA [Suspect]
     Active Substance: ADALIMUMAB
     Indication: RHEUMATOID ARTHRITIS
  8. PANTOPRAZOLE [Concomitant]
     Active Substance: PANTOPRAZOLE
     Indication: OESOPHAGEAL DISORDER
  9. HUMIRA [Suspect]
     Active Substance: ADALIMUMAB
     Indication: ANKYLOSING SPONDYLITIS
     Dosage: 80 MG , TWO INJECTIONS PER MONTH AT HOME
     Route: 058
     Dates: start: 2012, end: 2012
  10. LYRICA [Suspect]
     Active Substance: PREGABALIN
     Indication: NECK PAIN
     Route: 048
     Dates: start: 20170413
  11. TAGAMET [Concomitant]
     Active Substance: CIMETIDINE
     Indication: OESOPHAGEAL DISORDER
  12. GABAPENTIN. [Suspect]
     Active Substance: GABAPENTIN
     Indication: NEURALGIA
  13. GABAPENTIN. [Suspect]
     Active Substance: GABAPENTIN
     Indication: MIGRAINE
  14. XOLAIR [Concomitant]
     Active Substance: OMALIZUMAB
     Indication: PRODUCT USED FOR UNKNOWN INDICATION
  15. LYRICA [Suspect]
     Active Substance: PREGABALIN
     Indication: VERTIGO
  16. GABAPENTIN. [Suspect]
     Active Substance: GABAPENTIN
     Indication: BACK PAIN
  17. GABAPENTIN. [Suspect]
     Active Substance: GABAPENTIN
     Indication: SPINAL CORD INJURY
     Route: 048

REACTIONS (23)
  - Vertigo [Unknown]
  - Neck pain [Not Recovered/Not Resolved]
  - Migraine [Not Recovered/Not Resolved]
  - Vertigo [Recovering/Resolving]
  - Headache [Recovering/Resolving]
  - Sympathetic posterior cervical syndrome [Unknown]
  - Off label use [Unknown]
  - Spinal cord injury [Not Recovered/Not Resolved]
  - Colostomy closure [Recovered/Resolved]
  - Sinusitis [Recovered/Resolved]
  - Pneumonia [Recovered/Resolved]
  - Hypoglobulinaemia [Unknown]
  - Neuralgia [Not Recovered/Not Resolved]
  - Headache [Not Recovered/Not Resolved]
  - Asthma [Not Recovered/Not Resolved]
  - Drug intolerance [Unknown]
  - Fibromyalgia [Not Recovered/Not Resolved]
  - Back pain [Unknown]
  - Migraine without aura [Unknown]
  - Colon operation [Recovered/Resolved]
  - Vestibular neuronitis [Unknown]
  - Neck pain [Unknown]
  - Bronchitis [Recovered/Resolved]

NARRATIVE: CASE EVENT DATE: 2012
